FAERS Safety Report 7198267-2 (Version None)
Quarter: 2010Q4

REPORT INFORMATION
  Report Type: 
  Country: None (occurrence: None)
  Receive Date: 20101227
  Receipt Date: 20101213
  Transmission Date: 20110411
  Serious: Yes (Hospitalization)
  Sender: FDA-Public Use
  Company Number: PHHY2009US66466

PATIENT
  Sex: Male
  Weight: 81 kg

DRUGS (1)
  1. EXJADE [Suspect]
     Dosage: 1500 (UNITS NOT REPORTED) PER DAY
     Route: 048

REACTIONS (2)
  - ASTHENIA [None]
  - FALL [None]
